FAERS Safety Report 4595296-X (Version None)
Quarter: 2005Q1

REPORT INFORMATION
  Report Type: 
  Country: None (occurrence: None)
  Receive Date: 20050223
  Receipt Date: 20050214
  Transmission Date: 20050727
  Serious: Yes (Hospitalization, Other)
  Sender: FDA-Public Use
  Company Number: 2005029654

PATIENT
  Age: 57 Year
  Sex: Female
  Weight: 68.0396 kg

DRUGS (9)
  1. LIPITOR [Suspect]
     Indication: BLOOD CHOLESTEROL INCREASED
     Dosage: 80 MG (80 MG, 1 IN 1 D), ORAL
     Route: 048
  2. HEPARIN [Suspect]
     Indication: CYSTITIS INTERSTITIAL
     Dates: end: 20050101
  3. LIDOCAINE [Suspect]
     Indication: CYSTITIS INTERSTITIAL
     Dates: end: 20050101
  4. GABAPENTIN [Concomitant]
  5. TOPIRAMATE [Concomitant]
  6. DILTIAZEM [Concomitant]
  7. NITROGLYCERIN [Concomitant]
  8. LANSOPRAZOLE [Concomitant]
  9. ASPIRIN [Concomitant]

REACTIONS (8)
  - ANGINA PECTORIS [None]
  - BLOOD ALKALINE PHOSPHATASE INCREASED [None]
  - CARDIAC DISORDER [None]
  - CYSTITIS INTERSTITIAL [None]
  - DRUG EFFECT DECREASED [None]
  - GALLBLADDER DISORDER [None]
  - GASTRIC DISORDER [None]
  - VOMITING [None]
